FAERS Safety Report 7675213-6 (Version None)
Quarter: 2011Q3

REPORT INFORMATION
  Report Type: 
  Country: None (occurrence: None)
  Receive Date: 20110810
  Receipt Date: 20110810
  Transmission Date: 20111222
  Serious: No
  Sender: FDA-Public Use
  Company Number: None

PATIENT
  Age: 46 Year
  Sex: Female
  Weight: 90.718 kg

DRUGS (1)
  1. OXISTAT [Suspect]
     Indication: LOCALISED INFECTION
     Dosage: APPLY ON SKIN
     Route: 061
     Dates: start: 20110802, end: 20110805

REACTIONS (2)
  - PRURITUS [None]
  - BLISTER [None]
